FAERS Safety Report 6317433-9 (Version None)
Quarter: 2009Q3

REPORT INFORMATION
  Report Type: 
  Country: None (occurrence: None)
  Receive Date: 20090820
  Receipt Date: 20090820
  Transmission Date: 20100115
  Serious: Yes (Other)
  Sender: FDA-Public Use
  Company Number: None

PATIENT
  Sex: Male

DRUGS (2)
  1. VYVANSE [Suspect]
     Indication: ATTENTION DEFICIT/HYPERACTIVITY DISORDER
     Dosage: 60 MG QAM PO LESS THAN 30-DAYS
     Route: 048
  2. VYVANSE [Suspect]
     Indication: PSYCHOMOTOR HYPERACTIVITY
     Dosage: 60 MG QAM PO LESS THAN 30-DAYS
     Route: 048

REACTIONS (3)
  - AGITATION [None]
  - ANGER [None]
  - SUICIDAL IDEATION [None]
